FAERS Safety Report 6842218-4 (Version None)
Quarter: 2010Q3

REPORT INFORMATION
  Report Type: 
  Country: None (occurrence: None)
  Receive Date: 20100714
  Receipt Date: 20070720
  Transmission Date: 20110219
  Serious: No
  Sender: FDA-Public Use
  Company Number: US-PFIZER INC-2007062176

PATIENT
  Sex: Female

DRUGS (4)
  1. CHANTIX [Suspect]
     Route: 048
     Dates: start: 20070710
  2. SYNTHROID [Concomitant]
  3. AMBIEN [Concomitant]
  4. ADIPEX [Concomitant]

REACTIONS (1)
  - MENSTRUAL DISORDER [None]
